FAERS Safety Report 18729169 (Version 3)
Quarter: 2021Q1

REPORT INFORMATION
  Report Type: Spontaneous
  Country: US (occurrence: US)
  Receive Date: 20210112
  Receipt Date: 20210211
  Transmission Date: 20210419
  Serious: Yes (Other)
  Sender: FDA-Public Use
  Company Number: US-BAYER-2021-020642

PATIENT
  Age: 17 Year
  Sex: Female
  Weight: 47.62 kg

DRUGS (4)
  1. VERSED [Concomitant]
     Active Substance: MIDAZOLAM HYDROCHLORIDE
     Dosage: UNK
     Route: 048
     Dates: start: 20210106
  2. VALIUM [Concomitant]
     Active Substance: DIAZEPAM
     Dosage: UNK
     Route: 048
     Dates: start: 20210106
  3. SKYLA [Suspect]
     Active Substance: LEVONORGESTREL
     Indication: CONTRACEPTION
     Dosage: 14 ?G PER DAY CONTINUOUSLY
     Route: 015
     Dates: start: 20200914, end: 202101
  4. CYTOTEC [Concomitant]
     Active Substance: MISOPROSTOL
     Dosage: UNK
     Dates: start: 20210106

REACTIONS (7)
  - Haemorrhage in pregnancy [None]
  - Drug ineffective [None]
  - Aggression [None]
  - Pregnancy with contraceptive device [Recovered/Resolved]
  - Mood swings [None]
  - Agitation [None]
  - Irritability [None]

NARRATIVE: CASE EVENT DATE: 20201227
